FAERS Safety Report 7190355-X (Version None)
Quarter: 2010Q4

REPORT INFORMATION
  Report Type: 
  Country: None (occurrence: None)
  Receive Date: 20101210
  Receipt Date: 20101125
  Transmission Date: 20110411
  Serious: Yes (Death, Hospitalization)
  Sender: FDA-Public Use
  Company Number: 2010000543

PATIENT
  Age: 73 Year
  Sex: Male
  Weight: 58.8 kg

DRUGS (7)
  1. ERLOTINIB HYDROCHLORIDE [Suspect]
     Indication: LUNG ADENOCARCINOMA
     Dosage: (150 MG),ORAL
     Route: 048
     Dates: start: 20090306, end: 20090719
  2. RULID (ROXITHROMYCIN) [Suspect]
     Indication: PRODUCT USED FOR UNKNOWN INDICATION
     Dosage: ORAL
     Route: 048
     Dates: end: 20090318
  3. NAIXAN(NAPROXEN SODIUM) [Suspect]
     Indication: PRODUCT USED FOR UNKNOWN INDICATION
     Dosage: (300 MG,QD),ORAL
     Route: 048
     Dates: start: 20090501, end: 20090701
  4. NATEGLINIDE [Concomitant]
  5. CALBLOCK [Concomitant]
  6. OLMETEC [Concomitant]
  7. NATRILIX (INDAPAMI- [Concomitant]

REACTIONS (24)
  - BRONCHOPNEUMONIA [None]
  - BRONCHOSTENOSIS [None]
  - CIRCULATORY COLLAPSE [None]
  - CYSTITIS [None]
  - DUODENAL PERFORATION [None]
  - EFFUSION [None]
  - GASTRITIS ATROPHIC [None]
  - HEPATIC FAILURE [None]
  - HEPATIC FUNCTION ABNORMAL [None]
  - HEPATIC NECROSIS [None]
  - INTERSTITIAL LUNG DISEASE [None]
  - LUNG ADENOCARCINOMA [None]
  - MALIGNANT NEOPLASM PROGRESSION [None]
  - NEPHROSCLEROSIS [None]
  - PERICARDITIS [None]
  - PERIHEPATIC ABSCESS [None]
  - PERITONITIS [None]
  - PLEURAL EFFUSION [None]
  - PNEUMONIA [None]
  - RENAL CYST [None]
  - RENAL FAILURE [None]
  - RENAL TUBULAR NECROSIS [None]
  - RESPIRATORY FAILURE [None]
  - SCAR [None]
